FAERS Safety Report 12393530 (Version 2)
Quarter: 2016Q2

REPORT INFORMATION
  Report Type: Spontaneous
  Country: US (occurrence: US)
  Receive Date: 20160523
  Receipt Date: 20160609
  Transmission Date: 20160815
  Serious: Yes (Other)
  Sender: FDA-Public Use
  Company Number: US-BAYER-2016-098453

PATIENT
  Age: 96 Year
  Sex: Female
  Weight: 50.34 kg

DRUGS (2)
  1. METAMUCIL [Concomitant]
     Active Substance: PLANTAGO SEED
     Dosage: UNK
     Dates: start: 20160519
  2. MIRALAX [Suspect]
     Active Substance: POLYETHYLENE GLYCOL 3350
     Indication: LAXATIVE SUPPORTIVE CARE
     Dosage: 1 DF, QD
     Route: 048
     Dates: start: 2014

REACTIONS (2)
  - Absent bowel movement [None]
  - Product use issue [None]

NARRATIVE: CASE EVENT DATE: 2014
